FAERS Safety Report 5196953-7 (Version None)
Quarter: 2006Q4

REPORT INFORMATION
  Report Type: 
  Country: None (occurrence: None)
  Receive Date: 20061227
  Receipt Date: 20061215
  Transmission Date: 20070319
  Serious: Yes (Disabling)
  Sender: FDA-Public Use
  Company Number: 2006154546

PATIENT
  Age: 44 Year
  Sex: Female
  Weight: 59 kg

DRUGS (2)
  1. DOSTINEX [Suspect]
     Indication: BREAST PAIN
     Dosage: 1.5 G (0.5 MG, 3 IN 1 D), ORAL
     Route: 048
     Dates: start: 20020101, end: 20061101
  2. LANSOPRAZOLE [Concomitant]

REACTIONS (3)
  - COUGH [None]
  - FIBROSIS [None]
  - PLEURITIC PAIN [None]
